FAERS Safety Report 7435923-2 (Version None)
Quarter: 2011Q2

REPORT INFORMATION
  Report Type: 
  Country: None (occurrence: None)
  Receive Date: 20110418
  Receipt Date: 20110406
  Transmission Date: 20111010
  Serious: Yes (Hospitalization)
  Sender: FDA-Public Use
  Company Number: 027997

PATIENT
  Sex: Female
  Weight: 67.7 kg

DRUGS (4)
  1. MULTI-VITAMINS [Concomitant]
  2. NEXIUM [Concomitant]
  3. CIMZIA [Suspect]
     Indication: CROHN'S DISEASE
     Dosage: SEE IMAGE
     Route: 058
     Dates: start: 20100831, end: 20110208
  4. PREDNISONE [Concomitant]

REACTIONS (2)
  - GASTRITIS VIRAL [None]
  - SMALL INTESTINAL OBSTRUCTION [None]
